FAERS Safety Report 17899872 (Version 1)
Quarter: 2020Q2

REPORT INFORMATION
  Report Type: Spontaneous
  Country: US (occurrence: US)
  Receive Date: 20200616
  Receipt Date: 20200616
  Transmission Date: 20200714
  Serious: No
  Sender: FDA-Public Use
  Company Number: US-COVIS PHARMA B.V.-2019COV00190

PATIENT
  Sex: Female

DRUGS (1)
  1. PRILOSEC [Suspect]
     Active Substance: OMEPRAZOLE MAGNESIUM

REACTIONS (6)
  - Dark circles under eyes [Unknown]
  - Pallor [Unknown]
  - Respiratory disorder [Unknown]
  - Abdominal discomfort [Unknown]
  - Hypersomnia [Unknown]
  - Hypophagia [Unknown]
